FAERS Safety Report 4803419-X (Version None)
Quarter: 2005Q4

REPORT INFORMATION
  Report Type: 
  Country: None (occurrence: None)
  Receive Date: 20051013
  Receipt Date: 20050922
  Transmission Date: 20060501
  Serious: Yes (Hospitalization)
  Sender: FDA-Public Use
  Company Number: USA0508104471

PATIENT
  Age: 76 Year
  Sex: Male

DRUGS (3)
  1. FORTEO [Suspect]
     Dates: start: 20050615, end: 20050724
  2. NEXIUM [Concomitant]
  3. ENALAPRIL [Concomitant]

REACTIONS (2)
  - BILIARY COLIC [None]
  - CHOLELITHIASIS [None]
